FAERS Safety Report 10089788 (Version 1)
Quarter: 2014Q2

REPORT INFORMATION
  Report Type: Spontaneous
  Country: KR (occurrence: KR)
  Receive Date: 20140421
  Receipt Date: 20140421
  Transmission Date: 20141212
  Serious: Yes (Hospitalization, Other)
  Sender: FDA-Public Use
  Company Number: KR-WATSON-2014-07431

PATIENT
  Age: 36 Year
  Sex: Female

DRUGS (3)
  1. PREDNISOLONE (UNKNOWN) [Suspect]
     Indication: SYSTEMIC LUPUS ERYTHEMATOSUS
     Dosage: 30 MG, UNKNOWN
     Route: 048
  2. PREDNISOLONE (UNKNOWN) [Suspect]
     Dosage: 10 MG, UNKNOWN
     Route: 048
  3. PREDNISOLONE (UNKNOWN) [Suspect]
     Dosage: 10 TO 30 MG
     Route: 048

REACTIONS (3)
  - Uterine rupture [Recovered/Resolved with Sequelae]
  - Foetal death [Not Recovered/Not Resolved]
  - Maternal exposure during pregnancy [Not Recovered/Not Resolved]
